FAERS Safety Report 12170194 (Version 2)
Quarter: 2016Q2

REPORT INFORMATION
  Report Type: Spontaneous
  Country: US (occurrence: US)
  Receive Date: 20160311
  Receipt Date: 20160604
  Transmission Date: 20160815
  Serious: No
  Sender: FDA-Public Use
  Company Number: US-ASTRAZENECA-2016SE22006

PATIENT
  Sex: Female
  Weight: 80.3 kg

DRUGS (29)
  1. ATENOLOL. [Suspect]
     Active Substance: ATENOLOL
     Indication: BLOOD PRESSURE ABNORMAL
     Route: 048
  2. SIMVASTATIN. [Concomitant]
     Active Substance: SIMVASTATIN
     Indication: BLOOD CHOLESTEROL INCREASED
     Route: 048
  3. LEVOTHYROXINE. [Concomitant]
     Active Substance: LEVOTHYROXINE
     Indication: HYPOTHYROIDISM
     Route: 048
  4. LISINOPRIL. [Suspect]
     Active Substance: LISINOPRIL
     Indication: HYPERTENSION
     Route: 048
  5. CARBAMAZEPINE. [Concomitant]
     Active Substance: CARBAMAZEPINE
     Indication: AFFECTIVE DISORDER
     Route: 048
  6. LEVOTHYROXINE. [Concomitant]
     Active Substance: LEVOTHYROXINE
     Indication: HYPOTHYROIDISM
     Route: 048
  7. HYPERTOPION BROMIDE [Concomitant]
     Indication: ASTHMA
     Dosage: USE ONE VIAL UP TO 4 TIMES A DAY; AS REQUIRED
     Route: 055
  8. DIVALPROEX SODIUM DR [Concomitant]
     Active Substance: DIVALPROEX SODIUM
     Indication: AFFECTIVE DISORDER
     Route: 048
  9. ATENOLOL. [Suspect]
     Active Substance: ATENOLOL
     Indication: BLOOD PRESSURE ABNORMAL
     Route: 048
  10. SYMBICORT [Suspect]
     Active Substance: BUDESONIDE\FORMOTEROL FUMARATE DIHYDRATE
     Indication: ASTHMA
     Dosage: 160-4.5MCG, TWO PUFFS TWO TIMES A DAY
     Route: 055
     Dates: start: 201512
  11. ZIPRASIDONE HCL [Concomitant]
     Active Substance: ZIPRASIDONE HYDROCHLORIDE
     Indication: AFFECTIVE DISORDER
     Route: 048
  12. LAMOTRIGINE. [Concomitant]
     Active Substance: LAMOTRIGINE
     Indication: AFFECTIVE DISORDER
     Route: 048
  13. CARBAMAZEPINE. [Concomitant]
     Active Substance: CARBAMAZEPINE
     Indication: AFFECTIVE DISORDER
     Route: 048
  14. PANTOPRAZOLE SOD BR [Concomitant]
     Indication: DUODENAL ULCER
     Route: 048
  15. PANTOPRAZOLE SOD BR [Concomitant]
     Indication: GASTROOESOPHAGEAL REFLUX DISEASE
     Route: 048
  16. METFORMIN HCL [Concomitant]
     Active Substance: METFORMIN HYDROCHLORIDE
     Indication: TYPE 2 DIABETES MELLITUS
     Route: 048
  17. BUPROPION HCL [Concomitant]
     Active Substance: BUPROPION HYDROCHLORIDE
     Indication: DEPRESSION
     Route: 048
  18. FLUVOXAMINE MALEATE. [Concomitant]
     Active Substance: FLUVOXAMINE MALEATE
     Indication: OBSESSIVE-COMPULSIVE DISORDER
     Route: 048
  19. PRIMIDONE. [Concomitant]
     Active Substance: PRIMIDONE
     Indication: ESSENTIAL TREMOR
     Route: 048
  20. POLYETHYLEYENE GLYCOL [Concomitant]
     Indication: CONSTIPATION
     Dosage: ONE TO TWO CAPSULES DAILY, AS NEEDED
     Route: 048
  21. ALBTEROL [Concomitant]
     Indication: ASTHMA
     Dosage: 0.83% NPH, 3ML USE ONE VIAL UP TO 4 TIMES A DAY
     Route: 055
  22. PANTOPRAZOLE SOD BR [Concomitant]
     Indication: PEPTIC ULCER
     Route: 048
  23. PANTOPRAZOLE SOD BR [Concomitant]
     Indication: EROSIVE OESOPHAGITIS
     Route: 048
  24. VITAMIN D3 [Concomitant]
     Active Substance: CHOLECALCIFEROL
     Indication: VITAMIN D DEFICIENCY
     Route: 048
  25. CLONAZEPAM. [Concomitant]
     Active Substance: CLONAZEPAM
     Indication: ANXIETY
     Dosage: ONE HALF IN MORNING ONE HALF AT NOON AND ONE WHOLE AT BEDTIME
     Route: 048
  26. QUETIAPINE SUMERATE [Concomitant]
     Indication: AFFECTIVE DISORDER
     Route: 048
  27. PROAIR HFA [Concomitant]
     Active Substance: ALBUTEROL SULFATE
     Indication: ASTHMA
     Dosage: 2 PUFFS UP TO 4 TIMES PER DAY AS REQUIRED
     Route: 055
  28. TOPIRIMAPE [Concomitant]
     Indication: AFFECTIVE DISORDER
     Route: 048
  29. FLUTICASONE [Concomitant]
     Active Substance: FLUTICASONE\FLUTICASONE PROPIONATE
     Dosage: AS REQUIRED; 2 SPRAYS EACH NOSTRIL PER DAY
     Route: 045

REACTIONS (5)
  - Dyspnoea [Unknown]
  - Affective disorder [Unknown]
  - Dry mouth [Unknown]
  - Drug dose omission [Unknown]
  - Product quality issue [Unknown]
